FAERS Safety Report 8511302-1 (Version None)
Quarter: 2012Q2

REPORT INFORMATION
  Report Type: 
  Country: None (occurrence: None)
  Receive Date: 20120629
  Receipt Date: 20120614
  Transmission Date: 20120825
  Serious: Yes (Death, Hospitalization)
  Sender: FDA-Public Use
  Company Number: ACO_30294_2012

PATIENT
  Age: 68 Year
  Sex: Female

DRUGS (11)
  1. PERINDOPRIL ERBUMINE [Suspect]
  2. OXYBUTYNIN [Concomitant]
  3. METOPROLOL TARTRATE [Concomitant]
  4. GRAVOL (DIMENHYDRINATE) [Concomitant]
  5. AQUIFY EYE DROPS (HYALURONATE SODIUM) [Concomitant]
  6. FOSAMAX [Concomitant]
  7. EFFEXOR [Concomitant]
  8. BACLOFEN [Concomitant]
  9. AMPYRA [Suspect]
     Indication: MULTIPLE SCLEROSIS
     Dates: start: 20050101
  10. CALCIUM CARBONATE [Concomitant]
  11. PLAQUENIL /00072602/ (HYDROXYCHLOROQUINE PHOSPHATE) [Concomitant]

REACTIONS (30)
  - MENTAL STATUS CHANGES [None]
  - MEAN CELL HAEMOGLOBIN INCREASED [None]
  - CEREBRAL MICROANGIOPATHY [None]
  - TROPONIN T INCREASED [None]
  - LIVEDO RETICULARIS [None]
  - THROMBOSIS [None]
  - LOSS OF CONSCIOUSNESS [None]
  - PULMONARY EMBOLISM [None]
  - GRAND MAL CONVULSION [None]
  - BLOOD CHLORIDE INCREASED [None]
  - ASPARTATE AMINOTRANSFERASE INCREASED [None]
  - LYMPHOCYTE PERCENTAGE DECREASED [None]
  - CARBON DIOXIDE DECREASED [None]
  - BLOOD MAGNESIUM DECREASED [None]
  - WHITE BLOOD CELL COUNT INCREASED [None]
  - HAEMATOCRIT DECREASED [None]
  - SEPSIS [None]
  - BLOOD THYROID STIMULATING HORMONE INCREASED [None]
  - NEUTROPHIL PERCENTAGE INCREASED [None]
  - BLOOD CALCIUM DECREASED [None]
  - RED BLOOD CELL COUNT DECREASED [None]
  - RESPIRATORY DISTRESS [None]
  - BLOOD CREATININE INCREASED [None]
  - HAEMOGLOBIN DECREASED [None]
  - BLOOD SODIUM DECREASED [None]
  - PERIPHERAL COLDNESS [None]
  - RESPIRATORY ARREST [None]
  - MUSCULAR WEAKNESS [None]
  - PULSE ABSENT [None]
  - CARDIOGENIC SHOCK [None]
